FAERS Safety Report 15775226 (Version 1)
Quarter: 2018Q4

REPORT INFORMATION
  Report Type: Report from Study
  Country: NL (occurrence: NL)
  Receive Date: 20181231
  Receipt Date: 20181231
  Transmission Date: 20190205
  Serious: Yes (Other)
  Sender: FDA-Public Use
  Company Number: NL-ACCORD-098778

PATIENT
  Sex: Male

DRUGS (3)
  1. GENTAMICIN. [Interacting]
     Active Substance: GENTAMICIN
     Indication: SEPSIS
     Dates: start: 19990318, end: 19990328
  2. CARBOPLATIN. [Suspect]
     Active Substance: CARBOPLATIN
     Indication: CONGENITAL RETINOBLASTOMA
  3. VANCOMYCIN [Concomitant]
     Active Substance: VANCOMYCIN
     Indication: SEPSIS
     Dates: start: 19990314, end: 19990317

REACTIONS (3)
  - Off label use [Unknown]
  - Deafness bilateral [Unknown]
  - Drug interaction [Unknown]

NARRATIVE: CASE EVENT DATE: 20060505
